FAERS Safety Report 12901071 (Version 1)
Quarter: 2016Q4

REPORT INFORMATION
  Report Type: Spontaneous
  Country: US (occurrence: US)
  Receive Date: 20161101
  Receipt Date: 20161101
  Transmission Date: 20170207
  Serious: Yes (Hospitalization)
  Sender: FDA-Public Use
  Company Number: US-BEH-2016074675

PATIENT
  Sex: Female
  Weight: 115.65 kg

DRUGS (38)
  1. HIZENTRA [Suspect]
     Active Substance: HUMAN IMMUNOGLOBULIN G
     Indication: IMMUNODEFICIENCY COMMON VARIABLE
     Dosage: 15 G, QW
     Route: 058
  2. COPAXONE [Concomitant]
     Active Substance: GLATIRAMER ACETATE
  3. ALBUTEROL                          /00139501/ [Concomitant]
     Active Substance: ALBUTEROL
  4. BACTROBAN [Concomitant]
     Active Substance: MUPIROCIN\MUPIROCIN CALCIUM
  5. CYMBALTA [Concomitant]
     Active Substance: DULOXETINE HYDROCHLORIDE
  6. NEURONTIN [Concomitant]
     Active Substance: GABAPENTIN
  7. ROPINIROLE. [Concomitant]
     Active Substance: ROPINIROLE
  8. VITAMINS WITH MINERALS [Concomitant]
     Active Substance: MINERALS\VITAMINS
  9. VESICARE [Concomitant]
     Active Substance: SOLIFENACIN SUCCINATE
  10. LIDODERM [Concomitant]
     Active Substance: LIDOCAINE
  11. OCEAN NASAL [Concomitant]
  12. TYLENOL EXTRA STRENGTH [Concomitant]
     Active Substance: ACETAMINOPHEN
  13. VITAMIN D3 [Concomitant]
     Active Substance: CHOLECALCIFEROL
  14. HUMALOG [Concomitant]
     Active Substance: INSULIN LISPRO
  15. ALLI [Concomitant]
     Active Substance: ORLISTAT
  16. POTASSIUM [Concomitant]
     Active Substance: POTASSIUM
  17. PATANASE [Concomitant]
     Active Substance: OLOPATADINE HYDROCHLORIDE
  18. NASACORT [Concomitant]
     Active Substance: TRIAMCINOLONE ACETONIDE
  19. IMODIUM [Concomitant]
     Active Substance: LOPERAMIDE HYDROCHLORIDE
  20. CALCIUM +D                         /00944201/ [Concomitant]
     Active Substance: CALCIUM CARBONATE\CHOLECALCIFEROL
  21. PROAIR HFA [Concomitant]
     Active Substance: ALBUTEROL SULFATE
  22. SINGULAIR [Concomitant]
     Active Substance: MONTELUKAST SODIUM
  23. BACLOFEN. [Concomitant]
     Active Substance: BACLOFEN
  24. LANTUS [Concomitant]
     Active Substance: INSULIN GLARGINE
  25. LASIX [Concomitant]
     Active Substance: FUROSEMIDE
  26. PRILOSEC [Concomitant]
     Active Substance: OMEPRAZOLE MAGNESIUM
  27. IRON [Concomitant]
     Active Substance: IRON
  28. MAGNESIUM OXIDE. [Concomitant]
     Active Substance: MAGNESIUM OXIDE
  29. DIPHENHYDRAMINE. [Concomitant]
     Active Substance: DIPHENHYDRAMINE
  30. EPIPEN [Concomitant]
     Active Substance: EPINEPHRINE
  31. ATORVASTATIN [Concomitant]
     Active Substance: ATORVASTATIN
  32. IPRATROPIUM [Concomitant]
     Active Substance: IPRATROPIUM
  33. SYMBICORT [Concomitant]
     Active Substance: BUDESONIDE\FORMOTEROL FUMARATE DIHYDRATE
  34. HIZENTRA [Suspect]
     Active Substance: HUMAN IMMUNOGLOBULIN G
     Dosage: UNK
     Route: 058
  35. LOSARTAN. [Concomitant]
     Active Substance: LOSARTAN
  36. LORATADINE. [Concomitant]
     Active Substance: LORATADINE
  37. NORMAL SALINE [Concomitant]
     Active Substance: SODIUM CHLORIDE
  38. MUCINEX [Concomitant]
     Active Substance: GUAIFENESIN

REACTIONS (2)
  - Chest pain [Unknown]
  - Sinusitis [Unknown]
